FAERS Safety Report 4691266-1 (Version None)
Quarter: 2005Q2

REPORT INFORMATION
  Report Type: 
  Country: None (occurrence: None)
  Receive Date: 20050610
  Receipt Date: 20050531
  Transmission Date: 20051028
  Serious: Yes (Disabling)
  Sender: FDA-Public Use
  Company Number: 2005081809

PATIENT
  Age: 69 Year
  Sex: Female

DRUGS (9)
  1. CELEBREX [Suspect]
     Indication: ARTHRITIS
     Dosage: ORAL
     Route: 048
     Dates: start: 20050101, end: 20050101
  2. ARTHROTEC [Suspect]
     Indication: ARTHRITIS
     Dosage: ORAL
     Route: 048
     Dates: start: 20050101, end: 20050101
  3. BEXTRA [Suspect]
     Indication: ARTHRITIS
     Dosage: 20 MG (20 MG, 1 IN 1 D), ORAL
     Route: 048
  4. PREVACID [Concomitant]
  5. ASPIRIN [Concomitant]
  6. GLUCOSAMINE WITH MSM (GLUCOSAMINE, METHYLSULFONYLMETHANE) [Concomitant]
  7. CALCIUM W/MAGNESIUM (CALCIUM, MAGNESIUM) [Concomitant]
  8. VITAMINS (VITAMINS) [Concomitant]
  9. FOLIC ACID [Concomitant]

REACTIONS (9)
  - ARTHRALGIA [None]
  - BURSITIS [None]
  - DRUG EFFECT DECREASED [None]
  - DRUG ERUPTION [None]
  - EXOSTOSIS [None]
  - INSOMNIA [None]
  - PRURITUS [None]
  - SOFT TISSUE DISORDER [None]
  - WALKING AID USER [None]
